FAERS Safety Report 8468901-5 (Version None)
Quarter: 2012Q2

REPORT INFORMATION
  Report Type: 
  Country: None (occurrence: None)
  Receive Date: 20120621
  Receipt Date: 20120621
  Transmission Date: 20120825
  Serious: No
  Sender: FDA-Public Use
  Company Number: None

PATIENT
  Sex: Female

DRUGS (1)
  1. ENBREL 50MG AMGEN  50MG BIW SQ [Suspect]
     Indication: PSORIASIS
     Dosage: 50 MG, BIW, SQ
     Dates: start: 20120601, end: 20120601

REACTIONS (2)
  - DYSPNOEA [None]
  - FLUID RETENTION [None]
